FAERS Safety Report 25396853 (Version 2)
Quarter: 2025Q3

REPORT INFORMATION
  Report Type: Report from Study
  Country: US (occurrence: US)
  Receive Date: 20250604
  Receipt Date: 20250704
  Transmission Date: 20251021
  Serious: Yes (Hospitalization)
  Sender: TAKEDA
  Company Number: US-TAKEDA-2025TUS051044

PATIENT
  Sex: Male
  Weight: 52 kg

DRUGS (7)
  1. LANADELUMAB [Suspect]
     Active Substance: LANADELUMAB
     Indication: Immune system disorder
     Dosage: 150 MILLIGRAM, Q2WEEKS
  2. LANADELUMAB [Suspect]
     Active Substance: LANADELUMAB
  3. LANADELUMAB [Suspect]
     Active Substance: LANADELUMAB
  4. VITAMIN D [Concomitant]
     Active Substance: VITAMIN D NOS
  5. ICATIBANT [Concomitant]
     Active Substance: ICATIBANT ACETATE
  6. ZINC [Concomitant]
     Active Substance: ZINC
  7. IRON [Concomitant]
     Active Substance: IRON

REACTIONS (2)
  - Ligament rupture [Unknown]
  - Dermatitis contact [Unknown]
